FAERS Safety Report 6234656-8 (Version None)
Quarter: 2009Q2

REPORT INFORMATION
  Report Type: 
  Country: None (occurrence: None)
  Receive Date: 20090618
  Receipt Date: 20090603
  Transmission Date: 20091009
  Serious: Yes (Other)
  Sender: FDA-Public Use
  Company Number: B0577880A

PATIENT
  Sex: Female
  Weight: 77 kg

DRUGS (2)
  1. ALLI [Suspect]
     Indication: WEIGHT DECREASED
     Dosage: 3CAP PER DAY
     Route: 065
     Dates: start: 20090511, end: 20090529
  2. FLUOXETINE HCL [Concomitant]
     Indication: DEPRESSION
     Route: 065
     Dates: start: 20090201

REACTIONS (2)
  - INTENTIONAL DRUG MISUSE [None]
  - RECTAL HAEMORRHAGE [None]
